FAERS Safety Report 5144154-0 (Version None)
Quarter: 2006Q4

REPORT INFORMATION
  Report Type: 
  Country: None (occurrence: None)
  Receive Date: 20061030
  Receipt Date: 20061011
  Transmission Date: 20070319
  Serious: Yes (Death)
  Sender: FDA-Public Use
  Company Number: FR200608002223

PATIENT
  Age: 33 Year
  Sex: Female
  Weight: 77 kg

DRUGS (9)
  1. ZYPREXA [Suspect]
     Indication: COTARD'S SYNDROME
     Dosage: 10 MG, 2/D, ORAL; 10 MG, DAILY (1/D), ORAL
     Route: 048
     Dates: start: 20060324, end: 20060503
  2. ZYPREXA [Suspect]
     Indication: COTARD'S SYNDROME
     Dosage: 10 MG, 2/D, ORAL; 10 MG, DAILY (1/D), ORAL
     Route: 048
     Dates: start: 20060503, end: 20060509
  3. CLOZAPINE [Concomitant]
  4. TERCIAN (CYAMEMAZINE) [Concomitant]
  5. LORAZEPAM [Concomitant]
  6. CITALOPRAM HYDROBROMIDE [Concomitant]
  7. IMOVANE (ZOPICLONE) [Concomitant]
  8. LEVONORGESTREL AND ETHINYL ESTRADIOL [Concomitant]
  9. GAVISCON [Concomitant]

REACTIONS (3)
  - DRUG INEFFECTIVE [None]
  - INTENTIONAL OVERDOSE [None]
  - TREATMENT NONCOMPLIANCE [None]
